FAERS Safety Report 9681571 (Version 1)
Quarter: 2013Q4

REPORT INFORMATION
  Report Type: Spontaneous
  Country: US (occurrence: US)
  Receive Date: 20131111
  Receipt Date: 20131111
  Transmission Date: 20140711
  Serious: No
  Sender: FDA-Public Use
  Company Number: US-ENDO PHARMACEUTICALS INC.-FURO20130002

PATIENT
  Sex: Male
  Weight: 74.91 kg

DRUGS (1)
  1. FUROSEMIDE TABLETS 40MG [Suspect]
     Indication: OEDEMA PERIPHERAL
     Route: 048

REACTIONS (1)
  - Drug ineffective [Not Recovered/Not Resolved]
